FAERS Safety Report 8355512-5 (Version None)
Quarter: 2012Q2

REPORT INFORMATION
  Report Type: 
  Country: None (occurrence: None)
  Receive Date: 20120512
  Receipt Date: 20120423
  Transmission Date: 20120825
  Serious: Yes (Other)
  Sender: FDA-Public Use
  Company Number: PHHY2012KR021027

PATIENT
  Sex: Male
  Weight: 76 kg

DRUGS (2)
  1. EXJADE [Suspect]
     Indication: APLASTIC ANAEMIA
     Dosage: 10  MG/KG
     Route: 048
     Dates: start: 20081013, end: 20090107
  2. IMMUNOSUPPRESSANTS [Concomitant]

REACTIONS (3)
  - RENAL DISORDER [None]
  - GENERAL PHYSICAL HEALTH DETERIORATION [None]
  - SERUM FERRITIN ABNORMAL [None]
